FAERS Safety Report 8142147-2 (Version None)
Quarter: 2012Q1

REPORT INFORMATION
  Report Type: 
  Country: None (occurrence: None)
  Receive Date: 20120103
  Receipt Date: 20110907
  Transmission Date: 20120608
  Serious: No
  Sender: FDA-Public Use
  Company Number: AE-2011-001322

PATIENT
  Age: 55 Year
  Sex: Female
  Weight: 72.5755 kg

DRUGS (7)
  1. PEGASYS [Concomitant]
  2. AMLODIPINE BESYLATE AND BENAZEPRIL HCL [Concomitant]
  3. RIBASPHERE [Concomitant]
  4. MILK THISTLE [Concomitant]
  5. METOPROLOL TARTRATE [Concomitant]
  6. FISH OIL (FISH OIL) [Concomitant]
  7. INCIVEK [Suspect]
     Dosage: 2250 MG (750 MG,1 IN 8 HR),ORAL
     Route: 048
     Dates: start: 20110902

REACTIONS (3)
  - FATIGUE [None]
  - ANAL PRURITUS [None]
  - ANORECTAL DISCOMFORT [None]
